FAERS Safety Report 8447817-4 (Version None)
Quarter: 2012Q2

REPORT INFORMATION
  Report Type: 
  Country: None (occurrence: None)
  Receive Date: 20120612
  Receipt Date: 20120605
  Transmission Date: 20120825
  Serious: Yes (Life-Threatening, Hospitalization)
  Sender: FDA-Public Use
  Company Number: 2012SP030380

PATIENT
  Age: 49 Year
  Sex: Female
  Weight: 63 kg

DRUGS (2)
  1. LEVOTHYROXINE SODIUM [Concomitant]
  2. DESOGESTREL AND ETHINYL ESTRADIOL [Suspect]
     Indication: CONTRACEPTION
     Dosage: ;PO
     Route: 048
     Dates: start: 20091101

REACTIONS (3)
  - ANEURYSM [None]
  - SUBARACHNOID HAEMORRHAGE [None]
  - HYPOTHYROIDISM [None]
